FAERS Safety Report 9150960 (Version 1)
Quarter: 2013Q1

REPORT INFORMATION
  Report Type: Spontaneous
  Country: US (occurrence: US)
  Receive Date: 20130308
  Receipt Date: 20130308
  Transmission Date: 20140127
  Serious: No
  Sender: FDA-Public Use
  Company Number: US-GLAXOSMITHKLINE-A0980357A

PATIENT
  Age: 70 Year
  Sex: Female

DRUGS (5)
  1. OLUX E [Suspect]
     Indication: SEBORRHOEIC DERMATITIS
     Dosage: 1APP TWICE PER DAY
     Route: 061
     Dates: start: 20120515
  2. NIZORAL [Concomitant]
     Route: 061
  3. CALCIUM [Concomitant]
  4. BIOTIN [Concomitant]
  5. MVI [Concomitant]

REACTIONS (2)
  - Drug effect decreased [Not Recovered/Not Resolved]
  - Skin exfoliation [Unknown]
